FAERS Safety Report 6414528-6 (Version None)
Quarter: 2009Q4

REPORT INFORMATION
  Report Type: 
  Country: None (occurrence: None)
  Receive Date: 20091026
  Receipt Date: 20091020
  Transmission Date: 20100525
  Serious: Yes (Disabling)
  Sender: FDA-Public Use
  Company Number: US-AVENTIS-200919412US

PATIENT
  Age: 67 Year
  Sex: Male

DRUGS (5)
  1. LANTUS [Suspect]
     Route: 058
     Dates: start: 19990101
  2. ZOLOFT [Concomitant]
     Dosage: DOSE: UNK
     Route: 048
  3. UNKNOWN DRUG [Concomitant]
     Dosage: DOSE: UNK
     Route: 048
  4. HUMALOG [Concomitant]
     Dosage: DOSE: UNK
  5. METFORMIN HCL [Concomitant]
     Dosage: DOSE: UNK

REACTIONS (6)
  - BLOOD GLUCOSE DECREASED [None]
  - GAIT DISTURBANCE [None]
  - GLYCOSYLATED HAEMOGLOBIN INCREASED [None]
  - NEUROPATHY PERIPHERAL [None]
  - PAIN IN EXTREMITY [None]
  - WHEELCHAIR USER [None]
